FAERS Safety Report 6579002-5 (Version None)
Quarter: 2010Q1

REPORT INFORMATION
  Report Type: 
  Country: None (occurrence: None)
  Receive Date: 20100212
  Receipt Date: 20100202
  Transmission Date: 20100710
  Serious: Yes (Hospitalization)
  Sender: FDA-Public Use
  Company Number: US-JNJFOC-20100201758

PATIENT
  Sex: Male

DRUGS (2)
  1. REMICADE [Suspect]
     Indication: COLITIS
     Dosage: 2 INFUSIONS ON UNSPECIFIED DATES
     Route: 042
  2. STEROIDS NOS [Concomitant]

REACTIONS (3)
  - HOSPITALISATION [None]
  - PALATAL OEDEMA [None]
  - PHARYNGITIS [None]
